FAERS Safety Report 4553164-3 (Version None)
Quarter: 2005Q1

REPORT INFORMATION
  Report Type: 
  Country: None (occurrence: None)
  Receive Date: 20050114
  Receipt Date: 20010821
  Transmission Date: 20050727
  Serious: Yes (Other)
  Sender: FDA-Public Use
  Company Number: DE-GLAXOSMITHKLINE-D0037311A

PATIENT
  Age: 65 Year
  Sex: Female
  Weight: 90 kg

DRUGS (5)
  1. ELMENDOS [Suspect]
     Indication: DEPRESSION
     Route: 048
     Dates: start: 20030901
  2. LAMICTAL [Suspect]
     Indication: DEPRESSION
     Route: 048
     Dates: start: 20030928
  3. QUILONUM RETARD [Suspect]
     Indication: DEPRESSION
     Dosage: 450MG TWICE PER DAY
     Route: 048
     Dates: start: 19950101
  4. SAROTEN RETARD [Concomitant]
     Route: 048
     Dates: start: 19950101
  5. CLIMOPAX [Concomitant]
     Route: 048

REACTIONS (23)
  - ALANINE AMINOTRANSFERASE INCREASED [None]
  - ANGIONEUROTIC OEDEMA [None]
  - ANTICONVULSANT DRUG LEVEL ABOVE THERAPEUTIC [None]
  - ASPARTATE AMINOTRANSFERASE INCREASED [None]
  - BLOOD ALKALINE PHOSPHATASE INCREASED [None]
  - BLOOD CALCIUM INCREASED [None]
  - BLOOD IMMUNOGLOBULIN E INCREASED [None]
  - BREAST CANCER [None]
  - C-REACTIVE PROTEIN INCREASED [None]
  - DRUG LEVEL DECREASED [None]
  - DRY MOUTH [None]
  - HAEMATOCRIT INCREASED [None]
  - HEPATIC ENZYME INCREASED [None]
  - HYPERTENSION [None]
  - HYPOTHYROIDISM [None]
  - MEAN CELL VOLUME INCREASED [None]
  - OEDEMA [None]
  - RASH [None]
  - RED BLOOD CELL COUNT INCREASED [None]
  - SKIN DISORDER [None]
  - SKIN ULCER [None]
  - URINARY INCONTINENCE [None]
  - WEIGHT INCREASED [None]
